FAERS Safety Report 17510601 (Version 1)
Quarter: 2020Q1

REPORT INFORMATION
  Report Type: Spontaneous
  Country: US (occurrence: US)
  Receive Date: 20200306
  Receipt Date: 20200306
  Transmission Date: 20200409
  Serious: No
  Sender: FDA-Public Use
  Company Number: None

PATIENT
  Age: 29 Year
  Sex: Male
  Weight: 54 kg

DRUGS (1)
  1. REMICADE [Suspect]
     Active Substance: INFLIXIMAB

REACTIONS (3)
  - Dyspnoea [None]
  - Chest discomfort [None]
  - Flushing [None]

NARRATIVE: CASE EVENT DATE: 20200306
